FAERS Safety Report 22604832 (Version 1)
Quarter: 2023Q2

REPORT INFORMATION
  Report Type: Spontaneous
  Country: PT (occurrence: PT)
  Receive Date: 20230615
  Receipt Date: 20230615
  Transmission Date: 20230721
  Serious: Yes (Hospitalization)
  Sender: FDA-Public Use
  Company Number: None

PATIENT
  Age: 72 Year
  Sex: Female

DRUGS (9)
  1. JARDIANCE [Suspect]
     Active Substance: EMPAGLIFLOZIN
     Indication: Product used for unknown indication
  2. CAPILAREMA [Concomitant]
     Indication: Product used for unknown indication
  3. Metformina + Vildagliptina, [Concomitant]
     Indication: Product used for unknown indication
     Dosage: STRENGTH-1000 MG + 50 MG
  4. Complexo hidr?xido f?rrico-polimaltose, [Concomitant]
     Indication: Product used for unknown indication
  5. CETIRIZINE HYDROCHLORIDE [Concomitant]
     Active Substance: CETIRIZINE HYDROCHLORIDE
     Indication: Product used for unknown indication
  6. Alopurinol, [Concomitant]
     Indication: Product used for unknown indication
  7. Lisinopril + Amlodipina [Concomitant]
     Indication: Product used for unknown indication
     Dosage: STRENGTH- 20 MG + 5 MG
  8. SIMVASTATIN [Concomitant]
     Active Substance: SIMVASTATIN
     Indication: Product used for unknown indication
  9. BISOPROLOL [Concomitant]
     Active Substance: BISOPROLOL
     Indication: Product used for unknown indication

REACTIONS (1)
  - Necrotising fasciitis [Recovered/Resolved]
